FAERS Safety Report 7937836-6 (Version None)
Quarter: 2011Q4

REPORT INFORMATION
  Report Type: 
  Country: None (occurrence: None)
  Receive Date: 20111123
  Receipt Date: 20111114
  Transmission Date: 20120403
  Serious: Yes (Hospitalization)
  Sender: FDA-Public Use
  Company Number: JP-MERCK-1111USA02042

PATIENT
  Age: 62 Year
  Sex: Male

DRUGS (3)
  1. JANUVIA [Suspect]
     Indication: TYPE 2 DIABETES MELLITUS
     Route: 048
     Dates: start: 20100422
  2. ACTOS [Concomitant]
     Route: 065
     Dates: start: 20090401
  3. AMARYL [Concomitant]
     Route: 065
     Dates: start: 20071101

REACTIONS (1)
  - CEREBRAL INFARCTION [None]
